FAERS Safety Report 9206426 (Version 1)
Quarter: 2013Q2

REPORT INFORMATION
  Report Type: Spontaneous
  Country: US (occurrence: US)
  Receive Date: 20130403
  Receipt Date: 20130403
  Transmission Date: 20140414
  Serious: No
  Sender: FDA-Public Use
  Company Number: US-BAYER-2013-040847

PATIENT
  Age: 46 Year
  Sex: Female
  Weight: 95.24 kg

DRUGS (11)
  1. BETASERON [Suspect]
     Dosage: 0.25 MG, QOD
     Route: 058
  2. DIAMOX SEQUE CAP 500MG CR [Concomitant]
     Dosage: 500 MG, UNK
  3. NEURONTIN [Concomitant]
     Dosage: UNK MG, UNK
  4. BACLOFEN [Concomitant]
     Dosage: UNK MG, UNK
  5. REQUIP [Concomitant]
     Dosage: UNK MG, UNK
  6. VITAMIN D [Concomitant]
     Dosage: 1000 UNK, UNK
  7. CALCIUM [Concomitant]
     Dosage: UNK
  8. IRON [Concomitant]
  9. METRONIDAZOLE [Concomitant]
  10. LEXAPRO [Concomitant]
  11. DIAMOX [Concomitant]

REACTIONS (2)
  - Initial insomnia [Unknown]
  - Injection site reaction [Unknown]
